FAERS Safety Report 14554404 (Version 1)
Quarter: 2018Q1

REPORT INFORMATION
  Report Type: Spontaneous
  Country: US (occurrence: US)
  Receive Date: 20180217
  Receipt Date: 20180217
  Transmission Date: 20180509
  Serious: No
  Sender: FDA-Public Use
  Company Number: None

PATIENT
  Age: 36 Year
  Weight: 77.4 kg

DRUGS (7)
  1. SINGULAIR [Suspect]
     Active Substance: MONTELUKAST SODIUM
  2. FLONASE [Concomitant]
     Active Substance: FLUTICASONE PROPIONATE
  3. BIOTIN [Concomitant]
     Active Substance: BIOTIN
  4. ZYRTEC [Concomitant]
     Active Substance: CETIRIZINE HYDROCHLORIDE
  5. ORTHO TRI CYCLEN LO [Suspect]
     Active Substance: ETHINYL ESTRADIOL\NORGESTIMATE
     Indication: DYSMENORRHOEA
     Route: 048
     Dates: start: 20180128, end: 20180210
  6. ORTHO TRI CYCLEN LO [Suspect]
     Active Substance: ETHINYL ESTRADIOL\NORGESTIMATE
     Indication: MUSCLE SPASMS
     Route: 048
     Dates: start: 20180128, end: 20180210
  7. ONE A DAY VITAMINS [Concomitant]

REACTIONS (3)
  - Peripheral swelling [None]
  - Acne cystic [None]
  - Dysmenorrhoea [None]

NARRATIVE: CASE EVENT DATE: 20180131
